FAERS Safety Report 13216450 (Version 1)
Quarter: 2017Q1

REPORT INFORMATION
  Report Type: Other
  Country: US (occurrence: US)
  Receive Date: 20170210
  Receipt Date: 20170210
  Transmission Date: 20170428
  Serious: No
  Sender: FDA-Public Use
  Company Number: US-ACORDA-ACO_123889_2016

PATIENT
  Sex: Female

DRUGS (4)
  1. TECFIDERA [Concomitant]
     Active Substance: DIMETHYL FUMARATE
     Indication: MULTIPLE SCLEROSIS
     Dosage: UNK
     Route: 065
  2. VITAMIN D [Concomitant]
     Active Substance: CHOLECALCIFEROL
  3. AMPYRA [Suspect]
     Active Substance: DALFAMPRIDINE
     Indication: MULTIPLE SCLEROSIS
     Dosage: 10 MG, BID
     Route: 048
  4. VITAMIN B12 [Concomitant]
     Active Substance: CYANOCOBALAMIN

REACTIONS (3)
  - Drug ineffective [Unknown]
  - Emotional disorder [Unknown]
  - Depressed mood [Unknown]
